FAERS Safety Report 8545969-9 (Version None)
Quarter: 2012Q3

REPORT INFORMATION
  Report Type: 
  Country: None (occurrence: None)
  Receive Date: 20120727
  Receipt Date: 20111128
  Transmission Date: 20120928
  Serious: No
  Sender: FDA-Public Use
  Company Number: US-ASTRAZENECA-2011SE72198

PATIENT
  Age: 38 Year
  Sex: Female
  Weight: 60.8 kg

DRUGS (4)
  1. GABAPENTIN [Concomitant]
  2. DOUBURAX [Concomitant]
  3. SEROQUEL [Suspect]
     Indication: BIPOLAR DISORDER
     Dosage: 900 MG, BID
     Route: 048
     Dates: start: 20070101
  4. ZALTREX [Concomitant]

REACTIONS (4)
  - CLUMSINESS [None]
  - SPINAL COLUMN STENOSIS [None]
  - MENTAL DISORDER [None]
  - BACK PAIN [None]
